FAERS Safety Report 8528445-9 (Version None)
Quarter: 2012Q3

REPORT INFORMATION
  Report Type: 
  Country: None (occurrence: None)
  Receive Date: 20120723
  Receipt Date: 20120710
  Transmission Date: 20120928
  Serious: Yes (Other)
  Sender: FDA-Public Use
  Company Number: CO-AMGEN-COLSP2012044192

PATIENT
  Age: 50 Year
  Sex: Female

DRUGS (6)
  1. ESCITALOPRAM [Concomitant]
     Indication: DEPRESSION
     Dosage: UNK
  2. ZOLPIDEM [Concomitant]
     Indication: SLEEP DISORDER
     Dosage: UNK
  3. LYRICA [Suspect]
     Indication: FIBROMYALGIA
     Dosage: 150 MG, 1X/DAY
     Route: 048
     Dates: start: 20120401, end: 20120630
  4. LYRICA [Suspect]
     Indication: PAIN
     Dosage: UNK
     Dates: start: 20120401
  5. ENBREL [Suspect]
     Indication: PRODUCT USED FOR UNKNOWN INDICATION
     Dosage: 50 MG, WEEKLY
     Route: 058
     Dates: start: 20120401, end: 20120625
  6. METOPROLOL SUCCINATE [Concomitant]
     Indication: HYPERTENSION
     Dosage: 100 MG, 1X/DAY
     Route: 048

REACTIONS (5)
  - INJECTION SITE SWELLING [None]
  - MENTAL RETARDATION [None]
  - INJECTION SITE INDURATION [None]
  - OEDEMA [None]
  - DISTURBANCE IN ATTENTION [None]
